FAERS Safety Report 9829240 (Version 1)
Quarter: 2014Q1

REPORT INFORMATION
  Report Type: Spontaneous
  Country: US (occurrence: US)
  Receive Date: 20140120
  Receipt Date: 20140120
  Transmission Date: 20141002
  Serious: Yes (Life-Threatening, Hospitalization)
  Sender: FDA-Public Use
  Company Number: US-MYLANLABS-2014S1000799

PATIENT
  Sex: Male

DRUGS (2)
  1. EMSAM (SELEGILINE TRANSDERMAL SYSTEM) [Suspect]
     Route: 062
  2. SUDAFED [Suspect]

REACTIONS (2)
  - Suicide attempt [Unknown]
  - Intentional drug misuse [Unknown]
